FAERS Safety Report 9181828 (Version 1)
Quarter: 2013Q1

REPORT INFORMATION
  Report Type: Spontaneous
  Country: ES (occurrence: ES)
  Receive Date: 20130322
  Receipt Date: 20130322
  Transmission Date: 20140127
  Serious: Yes (Hospitalization)
  Sender: FDA-Public Use
  Company Number: ES-NOVOPROD-373424

PATIENT
  Age: 49 Year
  Sex: Female
  Weight: 78 kg

DRUGS (2)
  1. INSULATARD NPH HUMAN [Suspect]
     Indication: BLOOD GLUCOSE INCREASED
     Dosage: 15 U, QD (10+5)
     Route: 065
  2. BROMOCRIPTINE [Concomitant]
     Dosage: 15 UNK, UNK

REACTIONS (1)
  - Ketoacidosis [Recovered/Resolved]
